FAERS Safety Report 5203573-4 (Version None)
Quarter: 2007Q1

REPORT INFORMATION
  Report Type: 
  Country: None (occurrence: None)
  Receive Date: 20070110
  Receipt Date: 20070102
  Transmission Date: 20070707
  Serious: Yes (Life-Threatening, Hospitalization)
  Sender: FDA-Public Use
  Company Number: GB-GLAXOSMITHKLINE-B0453282A

PATIENT
  Age: 86 Year
  Sex: Female
  Weight: 60 kg

DRUGS (6)
  1. AVANDAMET [Suspect]
     Route: 048
     Dates: end: 20061206
  2. OMNIPAQUE 140 [Suspect]
     Route: 042
     Dates: start: 20061130
  3. DIGOXIN [Concomitant]
     Indication: CARDIOVASCULAR DISORDER
     Route: 048
  4. FUROSEMIDE [Concomitant]
     Indication: CARDIOVASCULAR DISORDER
     Route: 048
  5. GLICLAZIDE [Concomitant]
     Route: 048
  6. RAMIPRIL [Concomitant]
     Indication: CARDIOVASCULAR DISORDER
     Route: 048

REACTIONS (2)
  - DRUG INTERACTION [None]
  - RENAL IMPAIRMENT [None]
